FAERS Safety Report 16382257 (Version 1)
Quarter: 2019Q2

REPORT INFORMATION
  Report Type: Spontaneous
  Country: US (occurrence: US)
  Receive Date: 20190426
  Receipt Date: 20190426
  Transmission Date: 20190711
  Serious: No
  Sender: FDA-Public Use
  Company Number: None

PATIENT
  Age: 66 Year
  Sex: Female
  Weight: 92.99 kg

DRUGS (6)
  1. DULOXATINE [Concomitant]
     Active Substance: DULOXETINE
  2. VITAMIN C [Concomitant]
     Active Substance: ASCORBIC ACID
  3. MULTI-VITAMIN [Concomitant]
     Active Substance: .ALPHA.-TOCOPHEROL ACETATE, DL-\ASCORBIC ACID\CYANOCOBALAMIN\FLUORIDE ION\FOLIC ACID\NIACIN\PYRIDOXINE\RIBOFLAVIN\THIAMINE\VITAMIN A\VITAMIN D
  4. FLUOROURACIL. [Suspect]
     Active Substance: FLUOROURACIL
     Indication: PRECANCEROUS SKIN LESION
     Route: 061
     Dates: start: 20190401, end: 20190408
  5. VITAMIN D [Concomitant]
     Active Substance: VITAMIN D NOS
  6. GABAPENTIN. [Concomitant]
     Active Substance: GABAPENTIN

REACTIONS (2)
  - Blister [None]
  - Burning sensation [None]

NARRATIVE: CASE EVENT DATE: 20190405
